FAERS Safety Report 17173517 (Version 3)
Quarter: 2020Q1

REPORT INFORMATION
  Report Type: Spontaneous
  Country: US (occurrence: US)
  Receive Date: 20191218
  Receipt Date: 20200324
  Transmission Date: 20200409
  Serious: Yes (Other)
  Sender: FDA-Public Use
  Company Number: US-BEH-2019110580

PATIENT
  Age: 18 Year
  Sex: Male

DRUGS (8)
  1. IDELVION [Suspect]
     Active Substance: COAGULATION FACTOR IX RECOMBINANT HUMAN
     Indication: PROPHYLAXIS
     Dosage: 2460 INTERNATIONAL UNIT, TUESDAY
     Route: 042
     Dates: start: 20190719
  2. IDELVION [Suspect]
     Active Substance: COAGULATION FACTOR IX RECOMBINANT HUMAN
     Indication: FACTOR IX DEFICIENCY
     Dosage: 2460 INTERNATIONAL UNIT, TUESDAY
     Route: 042
     Dates: start: 20190614
  3. IDELVION [Suspect]
     Active Substance: COAGULATION FACTOR IX RECOMBINANT HUMAN
     Indication: PROPHYLAXIS
     Dosage: 2460 INTERNATIONAL UNIT, TUESDAY
     Route: 042
     Dates: start: 20190719
  4. IDELVION [Suspect]
     Active Substance: COAGULATION FACTOR IX RECOMBINANT HUMAN
     Indication: FACTOR IX DEFICIENCY
     Dosage: 2460 INTERNATIONAL UNIT, QW
     Route: 042
     Dates: start: 20190614
  5. IDELVION [Suspect]
     Active Substance: COAGULATION FACTOR IX RECOMBINANT HUMAN
     Indication: FACTOR IX DEFICIENCY
     Dosage: 2460 INTERNATIONAL UNIT, QW
     Route: 042
     Dates: start: 20190614
  6. IDELVION [Suspect]
     Active Substance: COAGULATION FACTOR IX RECOMBINANT HUMAN
     Indication: FACTOR IX DEFICIENCY
     Dosage: 2460 INTERNATIONAL UNIT, TUESDAY
     Route: 042
     Dates: start: 20190614
  7. IDELVION [Suspect]
     Active Substance: COAGULATION FACTOR IX RECOMBINANT HUMAN
     Dosage: 2376 INTERNATIONAL UNIT, QW
     Route: 042
     Dates: start: 20190719
  8. IDELVION [Suspect]
     Active Substance: COAGULATION FACTOR IX RECOMBINANT HUMAN
     Dosage: 2376 INTERNATIONAL UNIT, QW
     Route: 042
     Dates: start: 20190719

REACTIONS (3)
  - Haemarthrosis [Unknown]
  - Haemarthrosis [Unknown]
  - Haemarthrosis [Unknown]

NARRATIVE: CASE EVENT DATE: 201912
